FAERS Safety Report 23951740 (Version 1)
Quarter: 2024Q2

REPORT INFORMATION
  Report Type: Spontaneous
  Country: ES (occurrence: ES)
  Receive Date: 20240607
  Receipt Date: 20240607
  Transmission Date: 20240716
  Serious: Yes (Life-Threatening, Hospitalization, Other)
  Sender: FDA-Public Use
  Company Number: None

PATIENT
  Age: 38 Year
  Sex: Female

DRUGS (3)
  1. LIDOCAINE [Suspect]
     Active Substance: LIDOCAINE
     Indication: Anaesthesia
     Dosage: 5 PERCENT
     Route: 061
     Dates: start: 20240411, end: 20240411
  2. TETRACAINE HYDROCHLORIDE [Interacting]
     Active Substance: TETRACAINE HYDROCHLORIDE
     Indication: Anaesthesia
     Dosage: 3 PERCENT
     Route: 061
     Dates: start: 20240411, end: 20240411
  3. PRILOCAINE [Interacting]
     Active Substance: PRILOCAINE
     Indication: Anaesthesia
     Dosage: 5 PERCENT
     Route: 061
     Dates: start: 20240411, end: 20240411

REACTIONS (3)
  - Status epilepticus [Recovered/Resolved]
  - Methaemoglobinaemia [Recovered/Resolved]
  - Drug interaction [Recovered/Resolved]

NARRATIVE: CASE EVENT DATE: 20240411
